FAERS Safety Report 6355713-1 (Version None)
Quarter: 2009Q3

REPORT INFORMATION
  Report Type: 
  Country: None (occurrence: None)
  Receive Date: 20090910
  Receipt Date: 20090901
  Transmission Date: 20100115
  Serious: Yes (Disabling)
  Sender: FDA-Public Use
  Company Number: 2008JP001731

PATIENT
  Age: 26 Year
  Sex: Female
  Weight: 55 kg

DRUGS (26)
  1. TACROLIMUS [Suspect]
     Indication: LUPUS NEPHRITIS
     Dosage: 3 MG, ORAL; 1 MG, ORAL; 2 MG, ORAL; 2.5 MG, ORAL
     Route: 048
     Dates: start: 20070720, end: 20070729
  2. TACROLIMUS [Suspect]
     Indication: LUPUS NEPHRITIS
     Dosage: 3 MG, ORAL; 1 MG, ORAL; 2 MG, ORAL; 2.5 MG, ORAL
     Route: 048
     Dates: start: 20070803, end: 20070816
  3. TACROLIMUS [Suspect]
     Indication: LUPUS NEPHRITIS
     Dosage: 3 MG, ORAL; 1 MG, ORAL; 2 MG, ORAL; 2.5 MG, ORAL
     Route: 048
     Dates: start: 20070817, end: 20070920
  4. TACROLIMUS [Suspect]
     Indication: LUPUS NEPHRITIS
     Dosage: 3 MG, ORAL; 1 MG, ORAL; 2 MG, ORAL; 2.5 MG, ORAL
     Route: 048
     Dates: start: 20070921, end: 20071018
  5. TACROLIMUS [Suspect]
     Indication: LUPUS NEPHRITIS
     Dosage: 3 MG, ORAL; 1 MG, ORAL; 2 MG, ORAL; 2.5 MG, ORAL
     Route: 048
     Dates: start: 20071019
  6. PREDNISOLONE [Suspect]
     Indication: LUPUS NEPHRITIS
     Dosage: SEE IMAGE
     Route: 048
     Dates: end: 20070817
  7. PREDNISOLONE [Suspect]
     Indication: LUPUS NEPHRITIS
     Dosage: SEE IMAGE
     Route: 048
     Dates: start: 20070818, end: 20070921
  8. PREDNISOLONE [Suspect]
     Indication: LUPUS NEPHRITIS
     Dosage: SEE IMAGE
     Route: 048
     Dates: start: 20070922, end: 20071019
  9. PREDNISOLONE [Suspect]
     Indication: LUPUS NEPHRITIS
     Dosage: SEE IMAGE
     Route: 048
     Dates: start: 20071020, end: 20071214
  10. PREDNISOLONE [Suspect]
     Indication: LUPUS NEPHRITIS
     Dosage: SEE IMAGE
     Route: 048
     Dates: start: 20071215, end: 20080208
  11. PREDNISOLONE [Suspect]
     Indication: LUPUS NEPHRITIS
     Dosage: SEE IMAGE
     Route: 048
     Dates: start: 20080209, end: 20080904
  12. PREDNISOLONE [Suspect]
     Indication: LUPUS NEPHRITIS
     Dosage: SEE IMAGE
     Route: 048
     Dates: start: 20080905, end: 20090305
  13. PREDNISOLONE [Suspect]
     Indication: LUPUS NEPHRITIS
     Dosage: SEE IMAGE
     Route: 048
     Dates: start: 20090306, end: 20090625
  14. PREDNISOLONE [Suspect]
     Indication: LUPUS NEPHRITIS
     Dosage: SEE IMAGE
     Route: 048
     Dates: start: 20090626
  15. SLOW-K (POTASSIUM CHLORIDE) PER ORAL NOS [Concomitant]
  16. ALFAROL (ALFACALCIDOL) PER ORAL NOS [Concomitant]
  17. MEVALOTIN (PRAVASTATIN SODIUM) PER ORAL NOS [Concomitant]
  18. KEISHIBUKURYOUGAN (HERBAL EXTRACT NOS) PER ORAL NOS [Concomitant]
  19. PERSANTIN (DIPYRIDAMOLE) PER ORAL NOS [Concomitant]
  20. LAC B (LACTOBACILLUS BIFIDUS, LYOPHILIZED) FINE GRANULE [Concomitant]
  21. TOMIRON (CEFTERAM PIVOXIL) PER ORAL NOS [Concomitant]
  22. KEISHITOU (HERBAL EXTRACT NOS) PER ORAL NOS [Concomitant]
  23. MAOUTOU (HERBAL EXTRACT NOS) PER ORAL NOS [Concomitant]
  24. ANAVAN FORMULATION UNKNOWN [Concomitant]
  25. ACTONEL (RISEDRONATE SODIUM) PER ORAL NOS [Concomitant]
  26. TOKISYAKUYAKUSAN (HERBAL EXTRACT NOS) PER ORAL NOS [Concomitant]

REACTIONS (6)
  - CYSTITIS [None]
  - DIARRHOEA [None]
  - NASOPHARYNGITIS [None]
  - OSTEONECROSIS [None]
  - UPPER RESPIRATORY TRACT INFLAMMATION [None]
  - URINARY TRACT INFECTION [None]
